FAERS Safety Report 25045998 (Version 1)
Quarter: 2025Q1

REPORT INFORMATION
  Report Type: Spontaneous
  Country: DE (occurrence: DE)
  Receive Date: 20250306
  Receipt Date: 20250306
  Transmission Date: 20250409
  Serious: Yes (Death, Other)
  Sender: AMGEN
  Company Number: DE-AMGEN-DEUSP2025037776

PATIENT

DRUGS (2)
  1. FILGRASTIM [Suspect]
     Active Substance: FILGRASTIM
     Indication: Product used for unknown indication
     Route: 065
  2. PREDNISONE [Suspect]
     Active Substance: PREDNISONE
     Indication: Product used for unknown indication
     Route: 065

REACTIONS (36)
  - Myelodysplastic syndrome [Fatal]
  - Burkitt^s lymphoma [Fatal]
  - Prostate cancer [Fatal]
  - Colon cancer [Fatal]
  - Non-small cell lung cancer [Fatal]
  - Small cell lung cancer [Fatal]
  - Breast cancer [Fatal]
  - Bladder cancer [Fatal]
  - Oesophageal carcinoma [Fatal]
  - Pancreatic carcinoma [Fatal]
  - Thyroid cancer [Fatal]
  - Tongue neoplasm malignant stage unspecified [Fatal]
  - Transitional cell cancer of the renal pelvis and ureter [Fatal]
  - Small intestine carcinoma [Fatal]
  - Gastric cancer [Fatal]
  - Neuroendocrine carcinoma [Fatal]
  - Ovarian cancer [Fatal]
  - Acute myeloid leukaemia [Fatal]
  - Glioblastoma [Fatal]
  - Tonsil cancer [Fatal]
  - Rectal cancer [Unknown]
  - Soft tissue sarcoma [Unknown]
  - Basal cell carcinoma [Unknown]
  - Hodgkin^s disease [Unknown]
  - Acute lymphocytic leukaemia [Unknown]
  - Cutaneous T-cell lymphoma [Unknown]
  - Bowen^s disease [Unknown]
  - Cholangiocarcinoma [Unknown]
  - Malignant melanoma [Unknown]
  - Renal cancer [Unknown]
  - Angiosarcoma [Unknown]
  - Squamous cell carcinoma of skin [Unknown]
  - Laryngeal cancer [Unknown]
  - Endometrial cancer [Unknown]
  - Plasma cell myeloma refractory [Unknown]
  - Lymphoma [Unknown]
